FAERS Safety Report 5375388-8 (Version None)
Quarter: 2007Q2

REPORT INFORMATION
  Report Type: 
  Country: None (occurrence: None)
  Receive Date: 20070629
  Receipt Date: 20070618
  Transmission Date: 20071010
  Serious: Yes (Hospitalization, Other)
  Sender: FDA-Public Use
  Company Number: US-PFIZER INC-2007011711

PATIENT
  Age: 56 Year
  Sex: Female

DRUGS (8)
  1. ZOLOFT [Suspect]
  2. CHANTIX [Suspect]
     Indication: SMOKING CESSATION THERAPY
     Dates: end: 20060101
  3. MICRONASE TAB [Suspect]
  4. XANAX [Suspect]
  5. METFORMIN HCL [Suspect]
  6. GLUCOVANCE [Suspect]
  7. WELLBUTRIN [Suspect]
  8. SEROQUEL [Concomitant]

REACTIONS (16)
  - ARTHRITIS [None]
  - DIABETES MELLITUS [None]
  - DRUG ABUSER [None]
  - FALL [None]
  - FRACTURE [None]
  - HEART RATE INCREASED [None]
  - JOINT ARTHROPLASTY [None]
  - JOINT DISLOCATION [None]
  - JOINT INJURY [None]
  - KNEE ARTHROPLASTY [None]
  - LIGAMENT RUPTURE [None]
  - MULTIPLE INJURIES [None]
  - NERVOUSNESS [None]
  - THYROID DISORDER [None]
  - WEIGHT DECREASED [None]
  - WEIGHT INCREASED [None]
